FAERS Safety Report 8894312 (Version 1)
Quarter: 2012Q4

REPORT INFORMATION
  Report Type: 
  Country: US (occurrence: US)
  Receive Date: 20121107
  Receipt Date: 20121107
  Transmission Date: 20130627
  Serious: No
  Sender: FDA-Public Use
  Company Number: US-AMGEN-USASP2011053735

PATIENT
  Age: 62 Year
  Sex: Male
  Weight: 89.8 kg

DRUGS (9)
  1. ENBREL [Suspect]
     Indication: PRODUCT USED FOR UNKNOWN INDICATION
     Dosage: 50 mg, 2 times/wk
     Route: 058
  2. SERTRALINE [Concomitant]
     Dosage: 25 mg, UNK
  3. TRAZODONE [Concomitant]
     Dosage: 100 mg, UNK
  4. VITAMIN C                          /00008001/ [Concomitant]
     Dosage: 1000 mg, UNK
  5. ALLOPURINOL [Concomitant]
     Dosage: 100 mg, UNK
  6. FISH OIL [Concomitant]
     Dosage: UNK
  7. CALCIUM + VITAMIN D                /01483701/ [Concomitant]
     Dosage: UNK
  8. MULTIVITAMINS [Concomitant]
     Dosage: UNK
  9. METFORMIN ER [Concomitant]
     Dosage: 1000 mg, UNK

REACTIONS (3)
  - Injection site pain [Unknown]
  - Injection site erythema [Unknown]
  - Injection site swelling [Unknown]
